FAERS Safety Report 24278932 (Version 8)
Quarter: 2025Q4

REPORT INFORMATION
  Report Type: Spontaneous
  Country: US (occurrence: US)
  Receive Date: 20240903
  Receipt Date: 20251204
  Transmission Date: 20260118
  Serious: Yes (Other)
  Sender: PFIZER
  Company Number: US-PFIZER INC-PV202400079739

PATIENT
  Age: 75 Year
  Sex: Female

DRUGS (7)
  1. TUKYSA [Suspect]
     Active Substance: TUCATINIB
     Indication: Breast cancer female
     Dosage: 150MG 1 TABLET AND 50MG 2 TABLETS TWICE A DAY
  2. TUKYSA [Suspect]
     Active Substance: TUCATINIB
     Indication: Breast cancer metastatic
     Dosage: ONE 50MG TABLET ORALLY ALONG WITH 150MG TAB ORALLY TWICE DAILY
     Route: 048
     Dates: start: 20230206
  3. TUKYSA [Suspect]
     Active Substance: TUCATINIB
     Dosage: TAKE ONE TABLET TUKYSA 150 MG ALONG WITH TUKYSA 50 MG TWICE DAILY
  4. TUKYSA [Suspect]
     Active Substance: TUCATINIB
     Dosage: TAKE ONE TABLET TUKYSA 150 MG ALONG WITH TUKYSA 50 MG TWICE DAILY
  5. XELODA [Suspect]
     Active Substance: CAPECITABINE
     Dosage: UNK
  6. XELODA [Suspect]
     Active Substance: CAPECITABINE
     Dosage: 1000 MG PO BID, 7 DAYS ON/7DAYS OFF
     Route: 048
  7. HERCEPTIN [Concomitant]
     Active Substance: TRASTUZUMAB
     Dosage: Q3WK

REACTIONS (12)
  - Vomiting [Not Recovered/Not Resolved]
  - Food poisoning [Not Recovered/Not Resolved]
  - Gastrointestinal disorder [Not Recovered/Not Resolved]
  - Pain in extremity [Recovering/Resolving]
  - Weight loss poor [Unknown]
  - Loss of personal independence in daily activities [Unknown]
  - Malaise [Not Recovered/Not Resolved]
  - Diarrhoea [Recovered/Resolved]
  - Palmar-plantar erythrodysaesthesia syndrome [Recovering/Resolving]
  - Chills [Not Recovered/Not Resolved]
  - Bone marrow disorder [Not Recovered/Not Resolved]
  - Illness [Not Recovered/Not Resolved]

NARRATIVE: CASE EVENT DATE: 20240925
